FAERS Safety Report 12331224 (Version 1)
Quarter: 2016Q2

REPORT INFORMATION
  Report Type: Spontaneous
  Country: US (occurrence: US)
  Receive Date: 20160504
  Receipt Date: 20160504
  Transmission Date: 20160815
  Serious: Yes (Hospitalization)
  Sender: FDA-Public Use
  Company Number: US-UNITED THERAPEUTICS-UNT-2016-004388

PATIENT
  Age: 68 Year
  Sex: Female
  Weight: 58.5 kg

DRUGS (4)
  1. REMODULIN [Suspect]
     Active Substance: TREPROSTINIL
     Dosage: 0.1006 ?G/KG, CONTINUING
     Route: 041
     Dates: start: 20120724
  2. ELIQUIS [Concomitant]
     Active Substance: APIXABAN
     Indication: PRODUCT USED FOR UNKNOWN INDICATION
  3. LETAIRIS [Suspect]
     Active Substance: AMBRISENTAN
     Indication: PRODUCT USED FOR UNKNOWN INDICATION
     Dosage: 10 MG, UNK
     Route: 065
  4. REMODULIN [Suspect]
     Active Substance: TREPROSTINIL
     Indication: PULMONARY ARTERIAL HYPERTENSION
     Dosage: 0.1006 ?G/KG, CONTINUING
     Route: 041
     Dates: start: 20101122

REACTIONS (8)
  - Headache [Unknown]
  - Fatigue [Unknown]
  - Atrial fibrillation [Unknown]
  - Syncope [Unknown]
  - Weight increased [Unknown]
  - Oedema peripheral [Unknown]
  - Dyspnoea [Recovering/Resolving]
  - Dizziness [Unknown]

NARRATIVE: CASE EVENT DATE: 201603
